FAERS Safety Report 11048113 (Version 3)
Quarter: 2015Q3

REPORT INFORMATION
  Report Type: Spontaneous
  Country: US (occurrence: US)
  Receive Date: 20150420
  Receipt Date: 20150810
  Transmission Date: 20151125
  Serious: No
  Sender: FDA-Public Use
  Company Number: US-PFIZER INC-2015131341

PATIENT
  Age: 57 Year
  Sex: Female

DRUGS (7)
  1. INLYTA [Suspect]
     Active Substance: AXITINIB
     Indication: RENAL CANCER
     Dosage: 5 MG, 2X/DAY
     Dates: start: 20141212
  2. EFFEXOR XR [Concomitant]
     Active Substance: VENLAFAXINE HYDROCHLORIDE
     Dosage: 150 MG, UNK
     Dates: start: 20141212
  3. FISH OIL [Concomitant]
     Active Substance: FISH OIL
     Dosage: 1000 MG, UNK
     Dates: start: 20141212
  4. NEXAVAR [Concomitant]
     Active Substance: SORAFENIB
     Dosage: 200 MG, UNK
     Dates: start: 20141212
  5. MULTIVITAMIN FOR WOMEN PLUS [Concomitant]
     Dosage: UNK
     Dates: start: 20141212
  6. INLYTA [Suspect]
     Active Substance: AXITINIB
     Dosage: 7 MG, UNK
     Dates: start: 201502
  7. PROBIOTIC [Concomitant]
     Active Substance: PROBIOTICS NOS
     Dosage: UNK
     Dates: start: 20141212

REACTIONS (1)
  - Diarrhoea [Unknown]

NARRATIVE: CASE EVENT DATE: 201412
